FAERS Safety Report 4340555-9 (Version None)
Quarter: 2004Q2

REPORT INFORMATION
  Report Type: 
  Country: None (occurrence: None)
  Receive Date: 20040415
  Receipt Date: 20040408
  Transmission Date: 20050107
  Serious: Yes (Other)
  Sender: FDA-Public Use
  Company Number: 04-04-0526

PATIENT
  Age: 48 Year
  Sex: Female

DRUGS (1)
  1. CLOZAPINE [Suspect]
     Dosage: 300-900MG QD ORAL
     Route: 048
     Dates: start: 19980101, end: 20040127

REACTIONS (2)
  - AGRANULOCYTOSIS [None]
  - PANCYTOPENIA [None]
